FAERS Safety Report 13921294 (Version 1)
Quarter: 2017Q3

REPORT INFORMATION
  Report Type: Spontaneous
  Country: FR (occurrence: FR)
  Receive Date: 20170830
  Receipt Date: 20170830
  Transmission Date: 20171127
  Serious: Yes (Hospitalization)
  Sender: FDA-Public Use
  Company Number: FR-TEVA-799501ROM

PATIENT
  Age: 61 Year
  Sex: Male
  Weight: 68 kg

DRUGS (3)
  1. IFOSFAMIDE EG 40 MG/ML [Suspect]
     Active Substance: IFOSFAMIDE
     Indication: LYMPHOMA
     Dosage: 2650 MILLIGRAM DAILY; VIM PROTOCOL (ETOPOSIDE, IFOSFAMIDE AND MITOXANTRONE) DAY 1 TO DAY 3
     Route: 041
     Dates: start: 20160212, end: 20160214
  2. ETOPOSIDE TEVA 20 MG/ML [Suspect]
     Active Substance: ETOPOSIDE
     Indication: LYMPHOMA
     Route: 041
     Dates: start: 20160212, end: 20160214
  3. MITOXANTRONE [Suspect]
     Active Substance: MITOXANTRONE HYDROCHLORIDE
     Indication: LYMPHOMA
     Route: 041
     Dates: start: 20160212, end: 20160212

REACTIONS (1)
  - Febrile bone marrow aplasia [Recovered/Resolved]

NARRATIVE: CASE EVENT DATE: 20160218
